FAERS Safety Report 6822312-4 (Version None)
Quarter: 2010Q3

REPORT INFORMATION
  Report Type: 
  Country: None (occurrence: None)
  Receive Date: 20100708
  Receipt Date: 20100607
  Transmission Date: 20110219
  Serious: No
  Sender: FDA-Public Use
  Company Number: US-BAYER-201016621BCC

PATIENT
  Age: 82 Year
  Sex: Male
  Weight: 68 kg

DRUGS (3)
  1. ALEVE (CAPLET) [Suspect]
     Indication: BACK PAIN
     Dosage: TOTAL DAILY DOSE: 220 MG  UNIT DOSE: 220 MG
     Route: 048
     Dates: start: 20100603
  2. KROGER'S NATURAL OYSTER SHELL CALCIUM [Concomitant]
     Route: 065
  3. WALGREEN'S A-Z MULTIVITAMIN [Concomitant]
     Route: 065

REACTIONS (3)
  - DIARRHOEA [None]
  - INSOMNIA [None]
  - VOMITING [None]
